FAERS Safety Report 18319521 (Version 3)
Quarter: 2020Q4

REPORT INFORMATION
  Report Type: Spontaneous
  Country: US (occurrence: US)
  Receive Date: 20200928
  Receipt Date: 20201102
  Transmission Date: 20210113
  Serious: Yes (Death, Other)
  Sender: FDA-Public Use
  Company Number: US-VERTEX PHARMACEUTICALS-2020-019102

PATIENT
  Age: 17 Year
  Sex: Male
  Weight: 45 kg

DRUGS (23)
  1. VITAMIN D [ERGOCALCIFEROL] [Concomitant]
     Active Substance: ERGOCALCIFEROL
     Dosage: 400 UNIT TABLET
  2. ZERBAXA [Concomitant]
     Active Substance: CEFTOLOZANE SULFATE\TAZOBACTAM SODIUM
     Dosage: 1.5 GRAM
  3. PROGRAF [Concomitant]
     Active Substance: TACROLIMUS
  4. PREDNISONE. [Concomitant]
     Active Substance: PREDNISONE
     Dosage: 10 MILLIGRAM
  5. CREON [Concomitant]
     Active Substance: PANCRELIPASE AMYLASE\PANCRELIPASE LIPASE\PANCRELIPASE PROTEASE
     Dosage: 12-38K-60 CAPSULE DR
  6. AZITHROMYCIN ANHYDROUS. [Concomitant]
     Active Substance: AZITHROMYCIN ANHYDROUS
     Dosage: 250 MILLIGRAM
  7. FLOVENT [Concomitant]
     Active Substance: FLUTICASONE PROPIONATE
     Dosage: 100 MICROGRAM BLST W/DEV
  8. MAGNESIUM [Concomitant]
     Active Substance: MAGNESIUM
     Dosage: 250 MILLIGRAM
  9. RANITIDINE HCL [Concomitant]
     Active Substance: RANITIDINE HYDROCHLORIDE
     Dosage: 150 MILLIGRAM
  10. PROAIR HFA [Concomitant]
     Active Substance: ALBUTEROL SULFATE
     Dosage: 90 MICROGRAM
  11. VITAMIN D2 [Concomitant]
     Active Substance: ERGOCALCIFEROL
     Dosage: 2000 UNIT TABLET
  12. CREON [Concomitant]
     Active Substance: PANCRELIPASE AMYLASE\PANCRELIPASE LIPASE\PANCRELIPASE PROTEASE
     Dosage: 24-76-120 K CAPSULE DR
  13. TRIKAFTA [Suspect]
     Active Substance: ELEXACAFTOR\IVACAFTOR\TEZACAFTOR
     Indication: CYSTIC FIBROSIS
     Dosage: 2 ORANGE TAB (100 MG ELEXA/ 50 MG TEZA/ 75 MG IVA) AM; 1 BLUE TAB (150MG IVA) PM
     Route: 048
     Dates: start: 20200305, end: 2020
  14. METOPROLOL SUCCINATE. [Concomitant]
     Active Substance: METOPROLOL SUCCINATE
  15. MYCOPHENOLATE MOFETIL. [Concomitant]
     Active Substance: MYCOPHENOLATE MOFETIL
  16. PULMOZYME [Concomitant]
     Active Substance: DORNASE ALFA
     Dosage: 1 MILLIGRAM PER MILLILITRE
  17. ALBUTEROL SULFATE. [Concomitant]
     Active Substance: ALBUTEROL SULFATE
  18. COLISTIN SULFATE [Concomitant]
     Active Substance: COLISTIN SULFATE
     Dosage: 1 B UNIT POWDER (EA)
  19. CYPROHEPTADINE HCL [Concomitant]
     Active Substance: CYPROHEPTADINE HYDROCHLORIDE
     Dosage: 4 MILLIGRAM
  20. VITAMIN K [PHYTOMENADIONE] [Concomitant]
     Dosage: 100 MICROGRAM
  21. SALINE [SODIUM CHLORIDE] [Concomitant]
     Active Substance: SODIUM CHLORIDE
  22. FERROUS SULFATE. [Concomitant]
     Active Substance: FERROUS SULFATE
     Dosage: 324 (65) MG TABLET
  23. FERROUS SULFATE. [Concomitant]
     Active Substance: FERROUS SULFATE
     Dosage: 140 (45) MG TABLET ER

REACTIONS (2)
  - Lung transplant rejection [Fatal]
  - Lung transplant [Unknown]

NARRATIVE: CASE EVENT DATE: 202009
